FAERS Safety Report 7060019-1 (Version None)
Quarter: 2010Q4

REPORT INFORMATION
  Report Type: 
  Country: None (occurrence: None)
  Receive Date: 20101025
  Receipt Date: 20101018
  Transmission Date: 20110411
  Serious: Yes (Hospitalization)
  Sender: FDA-Public Use
  Company Number: FR-B.I. PHARMACEUTICALS,INC./RIDGEFIELD-2010-FF-00834FF

PATIENT
  Sex: Female

DRUGS (2)
  1. VIRAMUNE [Suspect]
     Indication: HIV INFECTION
     Dosage: 200 MG
     Route: 048
     Dates: start: 20100907
  2. VIRAMUNE [Suspect]
     Dosage: 400 MG
     Route: 048
     Dates: end: 20101011

REACTIONS (5)
  - CONJUNCTIVITIS [None]
  - PHARYNGITIS [None]
  - PULMONARY EMBOLISM [None]
  - PYREXIA [None]
  - TOXIC EPIDERMAL NECROLYSIS [None]
